FAERS Safety Report 4692082-7 (Version None)
Quarter: 2005Q2

REPORT INFORMATION
  Report Type: 
  Country: None (occurrence: None)
  Receive Date: 20050614
  Receipt Date: 20050601
  Transmission Date: 20051028
  Serious: Yes (Death, Other)
  Sender: FDA-Public Use
  Company Number: 2005BI000575

PATIENT
  Sex: Male

DRUGS (17)
  1. AVONEX [Suspect]
     Indication: MULTIPLE SCLEROSIS
     Dosage: 30 UG; QW;  IM
     Route: 030
     Dates: start: 19970101
  2. BACLOFEN [Concomitant]
  3. PREVACID [Concomitant]
  4. DIOVAN [Concomitant]
  5. PROVIGIL [Concomitant]
  6. WARFARIN [Concomitant]
  7. ASPIRIN [Concomitant]
  8. ONE A DAY VITAMIN [Concomitant]
  9. TOPROL-XL [Concomitant]
  10. PROSCAR [Concomitant]
  11. CHROMAGEN [Concomitant]
  12. CONTINUOUS POSITIVE AIRWAY PRESSURE [Concomitant]
  13. TRIAMCINOLONE [Concomitant]
  14. TYLENOL [Concomitant]
  15. ZANAFLEX [Concomitant]
  16. ALLEGRA [Concomitant]
  17. STOOL SOFTNER [Concomitant]

REACTIONS (4)
  - AORTIC ANEURYSM [None]
  - CEREBRAL HAEMORRHAGE [None]
  - COLON CANCER [None]
  - PULMONARY HAEMORRHAGE [None]
